FAERS Safety Report 6143195-4 (Version None)
Quarter: 2009Q2

REPORT INFORMATION
  Report Type: 
  Country: None (occurrence: None)
  Receive Date: 20090403
  Receipt Date: 20051027
  Transmission Date: 20091009
  Serious: Yes (Hospitalization)
  Sender: FDA-Public Use
  Company Number: ES-ROCHE-429712

PATIENT
  Sex: Male

DRUGS (27)
  1. MYCOPHENOLATE MOFETIL [Suspect]
     Dosage: TROUGH LEVEL
     Route: 048
     Dates: start: 20031108
  2. MYCOPHENOLATE MOFETIL [Suspect]
     Route: 048
     Dates: start: 20031109
  3. MYCOPHENOLATE MOFETIL [Suspect]
     Route: 048
     Dates: start: 20031112
  4. MYCOPHENOLATE MOFETIL [Suspect]
     Route: 048
     Dates: start: 20031117
  5. MYCOPHENOLATE MOFETIL [Suspect]
     Route: 048
     Dates: start: 20031202
  6. MYCOPHENOLATE MOFETIL [Suspect]
     Route: 048
     Dates: start: 20031209
  7. MYCOPHENOLATE MOFETIL [Suspect]
     Route: 048
     Dates: start: 20040802, end: 20041026
  8. MYCOPHENOLATE MOFETIL [Suspect]
     Route: 048
     Dates: start: 20041221
  9. CYCLOSPORINE [Suspect]
     Dosage: TROUGH LEVEL RECEIVED AS IV/VIAL
     Route: 048
     Dates: start: 20031108
  10. CYCLOSPORINE [Suspect]
     Route: 048
     Dates: start: 20031109
  11. CYCLOSPORINE [Suspect]
     Route: 048
     Dates: start: 20031112
  12. CYCLOSPORINE [Suspect]
     Route: 048
     Dates: start: 20031118, end: 20031202
  13. SIROLIMUS [Suspect]
     Route: 048
     Dates: start: 20050506, end: 20050531
  14. CORTICOSTEROIDS [Suspect]
     Dosage: RECEIVED AS IV/AMP, ONE DOSE
     Route: 050
     Dates: start: 20031108, end: 20031108
  15. CORTICOSTEROIDS [Suspect]
     Dosage: RECEIVED AS IV/AMP
     Route: 050
     Dates: start: 20031109
  16. CORTICOSTEROIDS [Suspect]
     Dosage: TABLET
     Route: 050
     Dates: start: 20031110
  17. CORTICOSTEROIDS [Suspect]
     Route: 050
     Dates: start: 20031118
  18. CORTICOSTEROIDS [Suspect]
     Dosage: TABLETS
     Route: 050
     Dates: start: 20031209
  19. CORTICOSTEROIDS [Suspect]
     Dosage: CAPSULE
     Route: 050
     Dates: start: 20040121
  20. CORTICOSTEROIDS [Suspect]
     Dosage: TABLET
     Route: 050
     Dates: start: 20040121
  21. CORTICOSTEROIDS [Suspect]
     Dosage: TABLETS
     Route: 050
     Dates: start: 20040310
  22. CORTICOSTEROIDS [Suspect]
     Dosage: CAPSULE
     Route: 050
     Dates: start: 20050506
  23. MAGALDRATO [Concomitant]
     Route: 048
     Dates: start: 20031110, end: 20031202
  24. NIFEDIPINO [Concomitant]
     Route: 048
     Dates: start: 20031111, end: 20041018
  25. COTRIM [Concomitant]
     Route: 048
     Dates: start: 20031114, end: 20040505
  26. DOXAZOSIN MESYLATE [Concomitant]
     Dates: start: 20031217
  27. DOXAZOSIN MESYLATE [Concomitant]
     Dates: start: 20040310, end: 20040505

REACTIONS (10)
  - ANAL FISSURE [None]
  - BASAL CELL CARCINOMA [None]
  - CYTOMEGALOVIRUS INFECTION [None]
  - DIARRHOEA [None]
  - HAEMORRHOIDS [None]
  - IRON DEFICIENCY ANAEMIA [None]
  - PNEUMONIA [None]
  - PNEUMONIA BACTERIAL [None]
  - PNEUMONIA HAEMOPHILUS [None]
  - TENDONITIS [None]
